FAERS Safety Report 10218922 (Version 1)
Quarter: 2014Q2

REPORT INFORMATION
  Report Type: Spontaneous
  Country: US (occurrence: None)
  Receive Date: 20140604
  Receipt Date: 20140604
  Transmission Date: 20141212
  Serious: No
  Sender: FDA-Public Use
  Company Number: None

PATIENT
  Sex: 0

DRUGS (1)
  1. HYDROMORPHONE INJECTION 0.5MG/0.5ML HOSPIRA [Suspect]
     Route: 048

REACTIONS (1)
  - Product barcode issue [None]
